FAERS Safety Report 25148550 (Version 1)
Quarter: 2025Q2

REPORT INFORMATION
  Report Type: Spontaneous
  Country: US (occurrence: US)
  Receive Date: 20250402
  Receipt Date: 20250402
  Transmission Date: 20250717
  Serious: No
  Sender: ROCHE
  Company Number: US-ROCHE-10000241573

PATIENT
  Age: 25 Year
  Sex: Female
  Weight: 95.25 kg

DRUGS (1)
  1. XOLAIR [Suspect]
     Active Substance: OMALIZUMAB
     Indication: Urticaria chronic
     Route: 058
     Dates: start: 2024

REACTIONS (5)
  - Product dose omission issue [Unknown]
  - Exposure via skin contact [Recovered/Resolved]
  - Drug delivery system malfunction [Unknown]
  - Device defective [Unknown]
  - Thermal burn [Unknown]

NARRATIVE: CASE EVENT DATE: 20250318
